FAERS Safety Report 16449400 (Version 4)
Quarter: 2019Q3

REPORT INFORMATION
  Report Type: Spontaneous
  Country: JP (occurrence: JP)
  Receive Date: 20190619
  Receipt Date: 20190829
  Transmission Date: 20191004
  Serious: Yes (Hospitalization)
  Sender: FDA-Public Use
  Company Number: JP-BRISTOL-MYERS SQUIBB COMPANY-BMS-2019-058505

PATIENT
  Age: 59 Year
  Sex: Female
  Weight: 52 kg

DRUGS (2)
  1. OPDIVO [Suspect]
     Active Substance: NIVOLUMAB
     Indication: RENAL CELL CARCINOMA
     Dosage: 240 MILLIGRAM
     Route: 041
     Dates: start: 20190109, end: 20190521
  2. YERVOY [Suspect]
     Active Substance: IPILIMUMAB
     Indication: RENAL CELL CARCINOMA
     Dosage: 41 MILLIGRAM
     Route: 041
     Dates: start: 20190109, end: 20190314

REACTIONS (4)
  - Chest pain [Recovered/Resolved]
  - Pyrexia [Recovered/Resolved]
  - Myalgia [Recovering/Resolving]
  - Arthralgia [Recovering/Resolving]

NARRATIVE: CASE EVENT DATE: 20190418
